FAERS Safety Report 9159842 (Version 2)
Quarter: 2013Q2

REPORT INFORMATION
  Report Type: Spontaneous
  Country: CH (occurrence: None)
  Receive Date: 20130219
  Receipt Date: 20130424
  Transmission Date: 20140414
  Serious: Yes (Death, Other)
  Sender: FDA-Public Use
  Company Number: INT_00208_2013

PATIENT
  Age: 74 Year
  Sex: Male
  Weight: 66 kg

DRUGS (5)
  1. CEFEPIME (CEFEPIME) [Suspect]
     Indication: FEBRILE NEUTROPENIA
     Dosage: (2 G 1X/8 HOURS), (DOSE DECREASED 33%)
  2. AMPHOTERICIN B [Suspect]
     Indication: PRODUCT USED FOR UNKNOWN INDICATION
     Dosage: DF
  3. METHOTREXATE (METHOTREXATE) [Suspect]
     Indication: CHEMOTHERAPY
  4. CYTARABINE (CYTARABINE) [Suspect]
     Indication: CHEMOTHERAPY
     Dosage: [PER DAY LOW DOSE])
  5. HYDROCORTISONE [Suspect]
     Indication: CHEMOTHERAPY

REACTIONS (6)
  - Myoclonus [None]
  - Confusional state [None]
  - Glomerular filtration rate decreased [None]
  - Encephalopathy [None]
  - Neurotoxicity [None]
  - Overdose [None]
